FAERS Safety Report 11990028 (Version 2)
Quarter: 2016Q2

REPORT INFORMATION
  Report Type: Spontaneous
  Country: US (occurrence: US)
  Receive Date: 20160202
  Receipt Date: 20160523
  Transmission Date: 20160815
  Serious: Yes (Death, Hospitalization, Other)
  Sender: FDA-Public Use
  Company Number: US-ELI_LILLY_AND_COMPANY-US201602000148

PATIENT
  Sex: Female

DRUGS (6)
  1. PORTRAZZA [Suspect]
     Active Substance: NECITUMUMAB
     Indication: NON-SMALL CELL LUNG CANCER
     Dosage: UNK
     Route: 065
     Dates: start: 201512
  2. GEMCITABINE HYDROCHLORIDE. [Suspect]
     Active Substance: GEMCITABINE HYDROCHLORIDE
     Indication: NON-SMALL CELL LUNG CANCER
     Dosage: UNK, UNKNOWN
     Route: 065
     Dates: start: 201512
  3. CARBOPLATIN. [Suspect]
     Active Substance: CARBOPLATIN
     Indication: NON-SMALL CELL LUNG CANCER
     Dosage: UNK, UNKNOWN
     Route: 065
     Dates: start: 201512
  4. PORTRAZZA [Suspect]
     Active Substance: NECITUMUMAB
     Dosage: UNK
     Route: 065
     Dates: start: 20151209
  5. PORTRAZZA [Suspect]
     Active Substance: NECITUMUMAB
     Dosage: UNK
     Route: 065
     Dates: start: 20160104
  6. PORTRAZZA [Suspect]
     Active Substance: NECITUMUMAB
     Dosage: UNK
     Route: 065
     Dates: start: 20151229

REACTIONS (5)
  - Respiratory failure [Fatal]
  - Malignant neoplasm progression [Unknown]
  - Pneumonia [Unknown]
  - Sepsis [Unknown]
  - Off label use [Unknown]

NARRATIVE: CASE EVENT DATE: 20160119
